FAERS Safety Report 12780198 (Version 2)
Quarter: 2016Q4

REPORT INFORMATION
  Report Type: Spontaneous
  Country: US (occurrence: US)
  Receive Date: 20160926
  Receipt Date: 20161025
  Transmission Date: 20170207
  Serious: No
  Sender: FDA-Public Use
  Company Number: US-GLAXOSMITHKLINE-US2016GSK139076

PATIENT
  Age: 60 Year
  Sex: Female

DRUGS (1)
  1. TANZEUM [Suspect]
     Active Substance: ALBIGLUTIDE
     Indication: TYPE 2 DIABETES MELLITUS
     Dosage: 30 MG, WE
     Route: 042
     Dates: start: 2015

REACTIONS (5)
  - Product quality issue [Unknown]
  - Injection site haemorrhage [Recovered/Resolved]
  - Product preparation error [Unknown]
  - Injection site bruising [Recovering/Resolving]
  - Device use error [Unknown]

NARRATIVE: CASE EVENT DATE: 20160906
